FAERS Safety Report 5189092-2 (Version None)
Quarter: 2006Q4

REPORT INFORMATION
  Report Type: 
  Country: None (occurrence: None)
  Receive Date: 20061218
  Receipt Date: 20061211
  Transmission Date: 20070319
  Serious: Yes (Other)
  Sender: FDA-Public Use
  Company Number: 2006SP008272

PATIENT
  Age: 58 Year
  Sex: Female
  Weight: 61.2356 kg

DRUGS (1)
  1. PEG-INTRON [Suspect]
     Indication: HEPATITIS C

REACTIONS (8)
  - BLOOD CHOLESTEROL INCREASED [None]
  - DEHYDRATION [None]
  - FIBROMYALGIA [None]
  - GINGIVAL BLEEDING [None]
  - IRRITABLE BOWEL SYNDROME [None]
  - LOOSE TOOTH [None]
  - OVERDOSE [None]
  - WEIGHT DECREASED [None]
